FAERS Safety Report 5150470-9 (Version None)
Quarter: 2006Q4

REPORT INFORMATION
  Report Type: 
  Country: None (occurrence: None)
  Receive Date: 20061114
  Receipt Date: 20041105
  Transmission Date: 20070319
  Serious: Yes (Hospitalization)
  Sender: FDA-Public Use
  Company Number: 2004AP05715

PATIENT
  Age: 15373 Day
  Sex: Female

DRUGS (21)
  1. ANAPEINE [Suspect]
     Indication: EPIDURAL ANAESTHESIA
     Dosage: DURING OPERATION
     Route: 008
     Dates: start: 20041029, end: 20041029
  2. ANAPEINE [Suspect]
     Dosage: POSTOPERATIVELY
     Route: 008
     Dates: start: 20041029, end: 20041029
  3. ANAPEINE [Suspect]
     Dosage: POSTOPERATIVELY
     Route: 008
     Dates: start: 20041030
  4. ANAPEINE [Suspect]
     Route: 008
     Dates: start: 20061030
  5. CARBOCAIN [Suspect]
     Indication: EPIDURAL ANAESTHESIA
     Dosage: TEST DOSE
     Route: 008
     Dates: start: 20041029, end: 20041029
  6. CARBOCAIN [Suspect]
     Route: 008
     Dates: start: 20041029, end: 20041029
  7. MORPHINE [Concomitant]
     Indication: PAIN
     Dosage: DURING OPERATION
     Route: 008
     Dates: start: 20041029, end: 20041029
  8. MORPHINE [Concomitant]
     Dosage: POSTOPERATIVE: ANAPEINE 2MG/ML 200ML AND MORPHINE 5MG/200ML WERE GIVEN CONTINUOUSLY 8ML/HR
     Route: 008
     Dates: start: 20041029, end: 20041029
  9. MORPHINE [Concomitant]
     Dosage: POSTOPERATIVE: DOSING SPEED OF EPIDURAL DECREASED TO 4ML/HR.
     Route: 008
     Dates: start: 20041030
  10. MORPHINE [Concomitant]
     Route: 008
     Dates: start: 20041030
  11. ISOFLURANE [Concomitant]
     Indication: GENERAL ANAESTHESIA
     Route: 055
     Dates: start: 20041029, end: 20041029
  12. DIPRIVAN [Concomitant]
     Indication: GENERAL ANAESTHESIA
     Route: 042
     Dates: start: 20041029, end: 20041029
  13. SUCCINYLCHOLINE CHLORIDE [Concomitant]
     Route: 042
     Dates: start: 20041029, end: 20041029
  14. MIOBLOCK [Concomitant]
     Route: 042
     Dates: start: 20041029, end: 20041029
  15. MUSCULAX [Concomitant]
     Route: 042
     Dates: start: 20041029, end: 20041029
  16. EPHEDRIN [Concomitant]
     Route: 042
     Dates: start: 20041029, end: 20041029
  17. ATROPINE SULFATE [Concomitant]
     Route: 042
     Dates: start: 20041029, end: 20041029
  18. VAGOSTIGMIN [Concomitant]
     Route: 042
     Dates: start: 20041029, end: 20041029
  19. PANSPORIN [Concomitant]
     Indication: INFECTION PROPHYLAXIS
     Route: 042
     Dates: start: 20041029, end: 20041101
  20. LAUGHING GAS [Concomitant]
     Indication: ANAESTHESIA
     Route: 055
     Dates: start: 20041029, end: 20041029
  21. OXYGEN [Concomitant]
     Indication: ANAESTHESIA
     Route: 055
     Dates: start: 20041029, end: 20041029

REACTIONS (14)
  - ABDOMINAL PAIN LOWER [None]
  - ANAESTHETIC COMPLICATION [None]
  - BEDRIDDEN [None]
  - DIPLEGIA [None]
  - DRUG EFFECT PROLONGED [None]
  - DRUG INEFFECTIVE [None]
  - FLATULENCE [None]
  - NERVE INJURY [None]
  - NERVOUS SYSTEM DISORDER [None]
  - PROCEDURAL PAIN [None]
  - PYREXIA [None]
  - SENSORIMOTOR DISORDER [None]
  - SENSORY LOSS [None]
  - WOUND COMPLICATION [None]
